FAERS Safety Report 24672682 (Version 1)
Quarter: 2024Q4

REPORT INFORMATION
  Report Type: Spontaneous
  Country: US (occurrence: US)
  Receive Date: 20241127
  Receipt Date: 20241127
  Transmission Date: 20250115
  Serious: Yes (Hospitalization, Other)
  Sender: CIPLA
  Company Number: US-CIPLA LTD.-2024US13442

PATIENT

DRUGS (18)
  1. LEVETIRACETAM [Suspect]
     Active Substance: LEVETIRACETAM
     Indication: Epilepsy
     Dosage: 1500 MILLIGRAM, BID
     Route: 065
  2. LEVETIRACETAM [Suspect]
     Active Substance: LEVETIRACETAM
     Dosage: 2000 MILLIGRAM, BID
     Route: 065
  3. LEVETIRACETAM [Suspect]
     Active Substance: LEVETIRACETAM
     Dosage: 3000 MILLIGRAM, TID (Q8H)
     Route: 065
  4. ZONISAMIDE [Suspect]
     Active Substance: ZONISAMIDE
     Indication: Epilepsy
     Dosage: 200 MILLIGRAM, BID
     Route: 065
  5. ZONISAMIDE [Suspect]
     Active Substance: ZONISAMIDE
     Dosage: 300 MILLIGRAM, BID
     Route: 065
  6. FOLIC ACID [Suspect]
     Active Substance: FOLIC ACID
     Indication: Product used for unknown indication
     Dosage: UNK
     Route: 065
  7. LORAZEPAM [Suspect]
     Active Substance: LORAZEPAM
     Indication: Epilepsy
     Dosage: TOTAL 10 MG ADMINISTERED IN 2 MG DOSES
     Route: 065
  8. PROPOFOL [Suspect]
     Active Substance: PROPOFOL
     Indication: Epilepsy
     Dosage: 30 MCG/KG/MIN
     Route: 065
  9. PROPOFOL [Suspect]
     Active Substance: PROPOFOL
     Dosage: 45 MCG/KG/MIN
     Route: 065
  10. KETAMINE [Suspect]
     Active Substance: KETAMINE
     Indication: Epilepsy
     Dosage: 80 MG
     Route: 042
  11. KETAMINE [Suspect]
     Active Substance: KETAMINE
     Dosage: 100 MCG/KG/MIN
     Route: 042
  12. KETAMINE [Suspect]
     Active Substance: KETAMINE
     Dosage: INCREASED TO 150 MCG/KG/MIN
     Route: 042
  13. KETAMINE [Suspect]
     Active Substance: KETAMINE
     Dosage: DECREASED TO 75 MCG/KG/MIN
     Route: 042
  14. KETAMINE [Suspect]
     Active Substance: KETAMINE
     Dosage: DECREASED TO 50 MCG/KG/MIN FOR 6 HOURS
     Route: 042
  15. KETAMINE [Suspect]
     Active Substance: KETAMINE
     Dosage: DECRESAED TO 30 MCG/KG/MIN
     Route: 042
  16. MAGNESIUM SULFATE [Suspect]
     Active Substance: MAGNESIUM SULFATE
     Indication: Epilepsy
     Dosage: UNK
     Route: 065
  17. OXCARBAZEPINE [Suspect]
     Active Substance: OXCARBAZEPINE
     Indication: Epilepsy
     Dosage: 300 MILLIGRAM, BID
     Route: 065
  18. LACOSAMIDE [Suspect]
     Active Substance: LACOSAMIDE
     Indication: Epilepsy
     Dosage: 200 MILLIGRAM, BID
     Route: 065

REACTIONS (4)
  - Status epilepticus [Recovered/Resolved]
  - Epilepsy [Recovered/Resolved]
  - Treatment failure [Unknown]
  - Exposure during pregnancy [Unknown]
